FAERS Safety Report 7170299-X (Version None)
Quarter: 2010Q4

REPORT INFORMATION
  Report Type: 
  Country: None (occurrence: None)
  Receive Date: 20101217
  Receipt Date: 20101011
  Transmission Date: 20110411
  Serious: No
  Sender: FDA-Public Use
  Company Number: A0885891A

PATIENT
  Age: 38 Year
  Sex: Female

DRUGS (4)
  1. LAMICTAL [Suspect]
     Indication: EPILEPSY
     Dosage: 200MG PER DAY
     Route: 048
     Dates: start: 20100501
  2. VESICARE [Concomitant]
  3. FLEXERIL [Concomitant]
  4. DEPAKOTE [Concomitant]

REACTIONS (1)
  - DRUG SCREEN FALSE POSITIVE [None]
